FAERS Safety Report 4984408-1 (Version None)
Quarter: 2006Q2

REPORT INFORMATION
  Report Type: 
  Country: None (occurrence: None)
  Receive Date: 20060421
  Receipt Date: 20060411
  Transmission Date: 20061013
  Serious: Yes (Other)
  Sender: FDA-Public Use
  Company Number: 2005037417

PATIENT
  Age: 16 Year
  Sex: Female

DRUGS (1)
  1. DEPO-PROVERA [Suspect]
     Indication: CONTRACEPTION
     Dosage: (1ST INJECTION)
     Dates: start: 20010528, end: 20010528

REACTIONS (12)
  - BENIGN INTRACRANIAL HYPERTENSION [None]
  - DEHYDRATION [None]
  - HEADACHE [None]
  - INTRACRANIAL PRESSURE INCREASED [None]
  - INTRACRANIAL VENOUS SINUS THROMBOSIS [None]
  - NAUSEA [None]
  - PAPILLOEDEMA [None]
  - PSEUDOBULBAR PALSY [None]
  - VAGINAL HAEMORRHAGE [None]
  - VISUAL DISTURBANCE [None]
  - VOMITING [None]
  - WEIGHT DECREASED [None]
